FAERS Safety Report 23011713 (Version 2)
Quarter: 2023Q4

REPORT INFORMATION
  Report Type: Report from Study
  Country: JP (occurrence: JP)
  Receive Date: 20230929
  Receipt Date: 20231102
  Transmission Date: 20240110
  Serious: Yes (Hospitalization)
  Sender: FDA-Public Use
  Company Number: JP-BAUSCH-BL-2023-014524

PATIENT
  Age: 65 Year
  Sex: Female

DRUGS (1)
  1. TETRABENAZINE [Suspect]
     Active Substance: TETRABENAZINE
     Indication: Huntington^s disease
     Dosage: 8 TABLETS/DAY.
     Route: 048
     Dates: start: 20220518

REACTIONS (2)
  - Sputum increased [Not Recovered/Not Resolved]
  - Chorea [Not Recovered/Not Resolved]

NARRATIVE: CASE EVENT DATE: 20230502
